FAERS Safety Report 19993392 (Version 1)
Quarter: 2021Q4

REPORT INFORMATION
  Report Type: Spontaneous
  Country: DE (occurrence: DE)
  Receive Date: 20211025
  Receipt Date: 20211025
  Transmission Date: 20220303
  Serious: Yes (Other)
  Sender: FDA-Public Use
  Company Number: DE-ORGANON-O2107DEU000179

PATIENT
  Sex: Male

DRUGS (1)
  1. FINASTERIDE [Suspect]
     Active Substance: FINASTERIDE
     Indication: Product used for unknown indication
     Dosage: UNK
     Route: 048
     Dates: start: 2015

REACTIONS (8)
  - Panic reaction [Unknown]
  - Sleep disorder [Unknown]
  - Suicidal ideation [Unknown]
  - Sexual dysfunction [Unknown]
  - Abdominal pain [Unknown]
  - Pain [Unknown]
  - Depression [Unknown]
  - Anorgasmia [Unknown]
